FAERS Safety Report 9708307 (Version 2)
Quarter: 2013Q4

REPORT INFORMATION
  Report Type: Spontaneous
  Country: US (occurrence: US)
  Receive Date: 20131125
  Receipt Date: 20131125
  Transmission Date: 20140711
  Serious: No
  Sender: FDA-Public Use
  Company Number: US-GILEAD-2013-0086554

PATIENT
  Sex: Male

DRUGS (3)
  1. LETAIRIS [Suspect]
     Indication: PULMONARY HYPERTENSION
     Dosage: 5 MG, QD
     Route: 048
     Dates: start: 20131004
  2. LETAIRIS [Suspect]
     Indication: ACUTE RESPIRATORY DISTRESS SYNDROME
  3. ADCIRCA [Concomitant]

REACTIONS (3)
  - Liver function test abnormal [Unknown]
  - Oxygen saturation decreased [Unknown]
  - Malaise [Unknown]
